FAERS Safety Report 17487035 (Version 1)
Quarter: 2020Q1

REPORT INFORMATION
  Report Type: Spontaneous
  Country: US (occurrence: US)
  Receive Date: 20200219
  Receipt Date: 20200219
  Transmission Date: 20200409
  Serious: Yes (Other)
  Sender: FDA-Public Use
  Company Number: None

PATIENT
  Age: 79 Year
  Sex: Female

DRUGS (6)
  1. METRONIDAZOLE 500MG TABLETS [Suspect]
     Active Substance: METRONIDAZOLE
     Indication: URINARY TRACT INFECTION
     Dosage: ?          QUANTITY:2 DF DOSAGE FORM;?
     Route: 048
     Dates: start: 20200120, end: 20200121
  2. LOPERAMIDE [Concomitant]
     Active Substance: LOPERAMIDE
  3. ALKA SELTZER COLD [Concomitant]
  4. LOW DOSE ASPIRIN [Concomitant]
     Active Substance: ASPIRIN
  5. ADVIL [Concomitant]
     Active Substance: IBUPROFEN
  6. DIPHENOXYLATE/ATROPHINE [Concomitant]

REACTIONS (5)
  - Therapy cessation [None]
  - Swollen tongue [None]
  - Urticaria [None]
  - Abdominal pain upper [None]
  - Lip swelling [None]

NARRATIVE: CASE EVENT DATE: 20200120
